FAERS Safety Report 18322444 (Version 1)
Quarter: 2020Q3

REPORT INFORMATION
  Report Type: Report from Study
  Country: US (occurrence: US)
  Receive Date: 20200929
  Receipt Date: 20200929
  Transmission Date: 20201103
  Serious: Yes (Other)
  Sender: FDA-Public Use
  Company Number: US-TEVA-2020-US-1834162

PATIENT
  Age: 55 Year
  Sex: Female

DRUGS (3)
  1. AUSTEDO [Suspect]
     Active Substance: DEUTETRABENAZINE
     Dosage: 12 MILLIGRAM DAILY;
     Route: 065
  2. AUSTEDO [Suspect]
     Active Substance: DEUTETRABENAZINE
     Dosage: 18 MILLIGRAM DAILY; 6 MG TABLET AND 1/2 OF A 6 MG TABLET
     Route: 065
  3. AUSTEDO [Suspect]
     Active Substance: DEUTETRABENAZINE
     Indication: TARDIVE DYSKINESIA
     Route: 048
     Dates: start: 20200827

REACTIONS (5)
  - Drug ineffective [Unknown]
  - Somnolence [Recovering/Resolving]
  - Dyskinesia [Recovering/Resolving]
  - Wrong technique in product usage process [Unknown]
  - Narcolepsy [Recovering/Resolving]

NARRATIVE: CASE EVENT DATE: 2020
